FAERS Safety Report 21826351 (Version 1)
Quarter: 2023Q1

REPORT INFORMATION
  Report Type: Report from Study
  Country: US (occurrence: US)
  Receive Date: 20230106
  Receipt Date: 20230106
  Transmission Date: 20230417
  Serious: No
  Sender: FDA-Public Use
  Company Number: US-ABBVIE-4230934

PATIENT
  Sex: Female

DRUGS (1)
  1. HUMIRA [Suspect]
     Active Substance: ADALIMUMAB
     Indication: Product use in unapproved indication
     Dosage: CITRATE FREE
     Route: 058

REACTIONS (2)
  - Pharyngitis streptococcal [Not Recovered/Not Resolved]
  - Tonsillar hypertrophy [Unknown]
